FAERS Safety Report 7766325-7 (Version None)
Quarter: 2011Q3

REPORT INFORMATION
  Report Type: 
  Country: None (occurrence: None)
  Receive Date: 20110922
  Receipt Date: 20110912
  Transmission Date: 20111222
  Serious: No
  Sender: FDA-Public Use
  Company Number: US-BIOGENIDEC-2011BI002382

PATIENT
  Sex: Female

DRUGS (1)
  1. TYSABRI [Suspect]
     Indication: MULTIPLE SCLEROSIS
     Route: 042
     Dates: start: 20101209

REACTIONS (11)
  - URINARY TRACT INFECTION [None]
  - NAUSEA [None]
  - GASTROINTESTINAL DISORDER [None]
  - INJECTION SITE PAIN [None]
  - NEPHROLITHIASIS [None]
  - HEADACHE [None]
  - TINNITUS [None]
  - COGNITIVE DISORDER [None]
  - DIZZINESS [None]
  - DECREASED APPETITE [None]
  - UPPER RESPIRATORY TRACT INFECTION [None]
